FAERS Safety Report 4436670-1 (Version None)
Quarter: 2004Q3

REPORT INFORMATION
  Report Type: 
  Country: None (occurrence: None)
  Receive Date: 20040728
  Receipt Date: 20031105
  Transmission Date: 20050211
  Serious: No
  Sender: FDA-Public Use
  Company Number: 203013

PATIENT
  Age: 60 Year
  Sex: Female
  Weight: 75.3 kg

DRUGS (2)
  1. RITUXAN [Suspect]
     Indication: DRUG USE FOR UNKNOWN INDICATION
     Dosage: 700 MG, INTRAVENOUS
     Route: 042
     Dates: start: 20030908, end: 20031015
  2. BACTRIM [Concomitant]

REACTIONS (1)
  - RASH [None]
